FAERS Safety Report 22605570 (Version 1)
Quarter: 2023Q2

REPORT INFORMATION
  Report Type: Spontaneous
  Country: IT (occurrence: IT)
  Receive Date: 20230615
  Receipt Date: 20230615
  Transmission Date: 20230722
  Serious: Yes (Other)
  Sender: FDA-Public Use
  Company Number: None

PATIENT
  Age: 63 Year
  Sex: Female
  Weight: 53 kg

DRUGS (2)
  1. CAPECITABINE [Suspect]
     Active Substance: CAPECITABINE
     Indication: Adenocarcinoma gastric
     Dosage: 3000 MG, QOW
     Route: 048
     Dates: start: 20230510, end: 20230523
  2. OXALIPLATIN [Suspect]
     Active Substance: OXALIPLATIN
     Indication: Adenocarcinoma gastric
     Dosage: 195 MG, EVERY 21 DAYS
     Route: 042
     Dates: start: 20230509, end: 20230509

REACTIONS (1)
  - Paraesthesia [Recovering/Resolving]

NARRATIVE: CASE EVENT DATE: 20230510
